FAERS Safety Report 18271744 (Version 1)
Quarter: 2020Q3

REPORT INFORMATION
  Report Type: Spontaneous
  Country: US (occurrence: US)
  Receive Date: 20200915
  Receipt Date: 20200915
  Transmission Date: 20201103
  Serious: Yes (Hospitalization)
  Sender: FDA-Public Use
  Company Number: None

PATIENT
  Age: 58 Year
  Sex: Female

DRUGS (35)
  1. ENBREL [Suspect]
     Active Substance: ETANERCEPT
     Indication: ANKYLOSING SPONDYLITIS
     Dosage: ?          OTHER DOSE:1 CART;?
     Route: 058
     Dates: start: 20140116
  2. DIOVAN [Concomitant]
     Active Substance: VALSARTAN
  3. GABAPENTIN. [Concomitant]
     Active Substance: GABAPENTIN
  4. GLUCOPHAGE [Concomitant]
     Active Substance: METFORMIN HYDROCHLORIDE
  5. HCTZ/TRIAMT [Concomitant]
     Active Substance: HYDROCHLOROTHIAZIDE\TRIAMTERENE
  6. XIFAXAN [Concomitant]
     Active Substance: RIFAXIMIN
  7. GEMFIBROZIL. [Concomitant]
     Active Substance: GEMFIBROZIL
  8. METFORMIN [Concomitant]
     Active Substance: METFORMIN HYDROCHLORIDE
  9. METOPROLOL. [Concomitant]
     Active Substance: METOPROLOL
  10. MICROGESTIN FE [Concomitant]
     Active Substance: ETHINYL ESTRADIOL\FERROUS FUMARATE\NORETHINDRONE ACETATE
  11. PREDNISONE. [Concomitant]
     Active Substance: PREDNISONE
  12. VITAMIN D [Concomitant]
     Active Substance: VITAMIN D NOS
  13. GLIPIZIDE. [Concomitant]
     Active Substance: GLIPIZIDE
  14. PANTOPRAZOLE [Concomitant]
     Active Substance: PANTOPRAZOLE
  15. PREVIDENT [Concomitant]
     Active Substance: SODIUM FLUORIDE
  16. PROVIGIL [Concomitant]
     Active Substance: MODAFINIL
  17. CALCIUM CARB [Concomitant]
     Active Substance: CALCIUM CARBONATE
  18. CEPHALEXIN. [Concomitant]
     Active Substance: CEPHALEXIN
  19. FOLIC ACID. [Concomitant]
     Active Substance: FOLIC ACID
  20. HUMULIN R [Concomitant]
     Active Substance: INSULIN HUMAN
  21. HYDROCHLOROT [Concomitant]
     Active Substance: HYDROCHLOROTHIAZIDE
  22. PREDNISOLONE. [Concomitant]
     Active Substance: PREDNISOLONE
  23. IRON [Concomitant]
     Active Substance: IRON
  24. LEVOTHYROXIN [Concomitant]
     Active Substance: LEVOTHYROXINE
  25. MISOPROSTOL. [Concomitant]
     Active Substance: MISOPROSTOL
  26. NEPTAZANE [Concomitant]
     Active Substance: METHAZOLAMIDE
  27. TOPROL XL [Concomitant]
     Active Substance: METOPROLOL SUCCINATE
  28. TRIAM/HCTZ [Concomitant]
     Active Substance: HYDROCHLOROTHIAZIDE\TRIAMTERENE
  29. JANUVIA [Concomitant]
     Active Substance: SITAGLIPTIN PHOSPHATE
  30. LEXAPRO [Concomitant]
     Active Substance: ESCITALOPRAM OXALATE
  31. MOBIC [Concomitant]
     Active Substance: MELOXICAM
  32. DOXYCYCL HYC [Concomitant]
  33. LATANOPROST. [Concomitant]
     Active Substance: LATANOPROST
  34. MULTI?VIT [Concomitant]
     Active Substance: VITAMINS
  35. PROTONIX [Concomitant]
     Active Substance: PANTOPRAZOLE SODIUM

REACTIONS (3)
  - Cellulitis [None]
  - Therapy interrupted [None]
  - Musculoskeletal stiffness [None]

NARRATIVE: CASE EVENT DATE: 20200804
